FAERS Safety Report 8971983 (Version 3)
Quarter: 2013Q1

REPORT INFORMATION
  Report Type: Spontaneous
  Country: IT (occurrence: IT)
  Receive Date: 20121218
  Receipt Date: 20130118
  Transmission Date: 20140127
  Serious: Yes (Hospitalization, Other)
  Sender: FDA-Public Use
  Company Number: PHHY2012IT115738

PATIENT
  Age: 69 Year
  Sex: Female

DRUGS (3)
  1. BISOPROLOL [Suspect]
     Indication: CARDIAC FAILURE
     Dosage: 5 MG DAILY
     Route: 048
     Dates: start: 20111220, end: 20121113
  2. TRAMADOL [Suspect]
     Indication: POST HERPETIC NEURALGIA
     Dosage: 12 DRP DAILY (5 DROPS 2-3 TIMES DAILY)
     Route: 048
     Dates: start: 20111220, end: 20121113
  3. TECHNOFER [Concomitant]
     Indication: MINERAL SUPPLEMENTATION

REACTIONS (4)
  - Bradycardia [Recovered/Resolved]
  - Blood potassium increased [Unknown]
  - C-reactive protein increased [Unknown]
  - Blood sodium decreased [Unknown]
